FAERS Safety Report 11212937 (Version 1)
Quarter: 2015Q2

REPORT INFORMATION
  Report Type: Spontaneous
  Country: US (occurrence: US)
  Receive Date: 20150623
  Receipt Date: 20150623
  Transmission Date: 20150821
  Serious: Yes (Other)
  Sender: FDA-Public Use
  Company Number: US-BAYER-2015-362150

PATIENT
  Age: 60 Year
  Sex: Male

DRUGS (1)
  1. FINACEA [Suspect]
     Active Substance: AZELAIC ACID
     Dosage: UNK
     Dates: start: 20150428

REACTIONS (3)
  - Upper respiratory tract infection [None]
  - Dyspnoea [Recovering/Resolving]
  - Otorrhoea [None]

NARRATIVE: CASE EVENT DATE: 20150611
